FAERS Safety Report 14176867 (Version 1)
Quarter: 2017Q4

REPORT INFORMATION
  Report Type: Report from Study
  Country: DE (occurrence: DE)
  Receive Date: 20171110
  Receipt Date: 20171110
  Transmission Date: 20180321
  Serious: Yes (Other)
  Sender: FDA-Public Use
  Company Number: DE-ROCHE-2014044

PATIENT
  Age: 63 Year
  Sex: Female

DRUGS (2)
  1. PERTUZUMAB. [Suspect]
     Active Substance: PERTUZUMAB
     Indication: HER-2 POSITIVE BREAST CANCER
     Route: 042
     Dates: start: 20140102, end: 20150303
  2. TRASTUZUMAB. [Suspect]
     Active Substance: TRASTUZUMAB
     Indication: HER-2 POSITIVE BREAST CANCER
     Route: 042
     Dates: start: 20140102, end: 20150303

REACTIONS (10)
  - Infection [Recovered/Resolved]
  - Myalgia [Recovered/Resolved]
  - Depression [Unknown]
  - Bladder pain [Not Recovered/Not Resolved]
  - Alopecia [Unknown]
  - Nausea [Recovered/Resolved]
  - Erysipelas [Recovered/Resolved]
  - Abdominal pain [Recovered/Resolved]
  - Stomatitis [Recovered/Resolved]
  - Vulvitis [Recovered/Resolved]

NARRATIVE: CASE EVENT DATE: 20140109
